FAERS Safety Report 7041323-X (Version None)
Quarter: 2010Q4

REPORT INFORMATION
  Report Type: 
  Country: None (occurrence: None)
  Receive Date: 20101013
  Receipt Date: 20101007
  Transmission Date: 20110411
  Serious: Yes (Other)
  Sender: FDA-Public Use
  Company Number: PHHY2010BR67572

PATIENT
  Sex: Female

DRUGS (4)
  1. MYFORTIC [Suspect]
     Dosage: 360 MG, 2 TABLETS IN THE MORNING, 2 TABLETS AT NIGHT
     Dates: start: 20020101
  2. MYFORTIC [Suspect]
     Dosage: 180MG, 4 TABLETS IN THE MORNING AND 4 TABLETS AT NIGHT
  3. COTITEM [Concomitant]
     Indication: OSTEOARTHRITIS
  4. METICORTEN [Concomitant]
     Dosage: 10 MG

REACTIONS (8)
  - ARTHRALGIA [None]
  - DRY MOUTH [None]
  - DRY THROAT [None]
  - HIP ARTHROPLASTY [None]
  - HUNGER [None]
  - KNEE ARTHROPLASTY [None]
  - MALAISE [None]
  - WEIGHT DECREASED [None]
